FAERS Safety Report 26092107 (Version 1)
Quarter: 2025Q4

REPORT INFORMATION
  Report Type: Spontaneous
  Country: US (occurrence: None)
  Receive Date: 20251126
  Receipt Date: 20251126
  Transmission Date: 20260118
  Serious: Yes (unspecified)
  Sender: FDA-CTU
  Company Number: None

PATIENT
  Age: 45 Year
  Sex: Female
  Weight: 97.07 kg

DRUGS (1)
  1. ALORA [Suspect]
     Active Substance: ESTRADIOL

REACTIONS (2)
  - Application site rash [None]
  - Application site scar [None]
